FAERS Safety Report 8070499-0 (Version None)
Quarter: 2012Q1

REPORT INFORMATION
  Report Type: 
  Country: None (occurrence: None)
  Receive Date: 20120125
  Receipt Date: 20120116
  Transmission Date: 20120608
  Serious: Yes (Hospitalization)
  Sender: FDA-Public Use
  Company Number: GB-GLAXOSMITHKLINE-B0775530A

PATIENT
  Sex: Male

DRUGS (3)
  1. NICOTINE [Suspect]
     Indication: PRODUCT USED FOR UNKNOWN INDICATION
     Dosage: 2U PER DAY
     Route: 048
  2. SPIRONOLACTONE [Concomitant]
  3. BISOPROLOL [Concomitant]

REACTIONS (3)
  - SOMNOLENCE [None]
  - CIRCULATORY COLLAPSE [None]
  - ACCIDENTAL EXPOSURE [None]
